FAERS Safety Report 10886927 (Version 2)
Quarter: 2015Q2

REPORT INFORMATION
  Report Type: Spontaneous
  Country: US (occurrence: US)
  Receive Date: 20150304
  Receipt Date: 20150407
  Transmission Date: 20150821
  Serious: Yes (Hospitalization, Other)
  Sender: FDA-Public Use
  Company Number: US-PFIZER INC-2015072526

PATIENT
  Age: 56 Year
  Sex: Female

DRUGS (2)
  1. DUAVEE [Suspect]
     Active Substance: BAZEDOXIFENE ACETATE\ESTROGENS, CONJUGATED
     Indication: HOT FLUSH
     Dosage: 0.45 MG, DAILY
     Route: 048
     Dates: end: 20150303
  2. DUAVEE [Suspect]
     Active Substance: BAZEDOXIFENE ACETATE\ESTROGENS, CONJUGATED
     Indication: NIGHT SWEATS

REACTIONS (2)
  - Generalised tonic-clonic seizure [Unknown]
  - Epilepsy [Unknown]

NARRATIVE: CASE EVENT DATE: 20141218
